FAERS Safety Report 11909137 (Version 1)
Quarter: 2016Q1

REPORT INFORMATION
  Report Type: Spontaneous
  Country: PE (occurrence: PE)
  Receive Date: 20160112
  Receipt Date: 20160112
  Transmission Date: 20160526
  Serious: Yes (Other)
  Sender: FDA-Public Use
  Company Number: PE-009507513-1601PER003098

PATIENT
  Age: 48 Year
  Sex: Male

DRUGS (1)
  1. JANUMET [Suspect]
     Active Substance: METFORMIN HYDROCHLORIDE\SITAGLIPTIN PHOSPHATE
     Indication: DIABETES MELLITUS
     Dosage: 50MG/1000MG, ONCE PER DAY
     Route: 048
     Dates: start: 20141110, end: 201508

REACTIONS (2)
  - Inappropriate schedule of drug administration [Unknown]
  - Surgery [Unknown]

NARRATIVE: CASE EVENT DATE: 20141110
